FAERS Safety Report 7824644-X (Version None)
Quarter: 2011Q4

REPORT INFORMATION
  Report Type: 
  Country: None (occurrence: None)
  Receive Date: 20111018
  Receipt Date: 20111018
  Transmission Date: 20120403
  Serious: No
  Sender: FDA-Public Use
  Company Number: None

PATIENT
  Age: 69 Year
  Sex: Female

DRUGS (11)
  1. REVATIO [Concomitant]
  2. PREVACOR [Concomitant]
  3. PROAIR HFA [Concomitant]
  4. SPIRONOLACTONE [Concomitant]
  5. LEVOTHROID [Concomitant]
  6. QVAR 40 [Concomitant]
  7. COUMADIN [Concomitant]
  8. LETAIRIS [Suspect]
     Indication: PULMONARY HYPERTENSION
     Dosage: 5MG QD ORALLY
     Route: 048
     Dates: start: 20100701, end: 20111001
  9. AMLODIPINE [Concomitant]
  10. PANTOPRAZOLE [Concomitant]
  11. LASIX [Concomitant]

REACTIONS (2)
  - NERVOUSNESS [None]
  - FATIGUE [None]
